FAERS Safety Report 6809347-2 (Version None)
Quarter: 2010Q2

REPORT INFORMATION
  Report Type: 
  Country: None (occurrence: None)
  Receive Date: 20100630
  Receipt Date: 20100622
  Transmission Date: 20101027
  Serious: Yes (Death, Hospitalization)
  Sender: FDA-Public Use
  Company Number: DE-ELI_LILLY_AND_COMPANY-DE201006007252

PATIENT
  Sex: Female
  Weight: 85.5 kg

DRUGS (3)
  1. GEMCITABINE HYDROCHLORIDE [Suspect]
     Indication: NON-SMALL CELL LUNG CANCER
     Dosage: 2325 MG, UNK
     Route: 042
     Dates: start: 20100518
  2. CISPLATIN [Suspect]
     Indication: NON-SMALL CELL LUNG CANCER
     Dosage: 140 MG, UNK
     Route: 042
     Dates: start: 20100518
  3. OTHER PHARMA COMPANY INV DRUG [Suspect]
     Indication: NON-SMALL CELL LUNG CANCER
     Dosage: 800 MG, UNK
     Route: 042
     Dates: start: 20100518

REACTIONS (1)
  - SEPSIS [None]
